FAERS Safety Report 9700021 (Version 1)
Quarter: 2013Q4

REPORT INFORMATION
  Report Type: Spontaneous
  Country: US (occurrence: US)
  Receive Date: 20131121
  Receipt Date: 20131121
  Transmission Date: 20140711
  Serious: No
  Sender: FDA-Public Use
  Company Number: US-BIOGENIDEC-2013BI111118

PATIENT
  Sex: Female

DRUGS (6)
  1. AVONEX [Suspect]
     Indication: MULTIPLE SCLEROSIS
     Route: 030
     Dates: start: 20070727
  2. AVONEX [Suspect]
     Indication: MULTIPLE SCLEROSIS
     Route: 030
  3. CYMBALTA [Concomitant]
  4. LOSARTAN POTASSIUM [Concomitant]
  5. PRAZOSIN HYDROCHLORIDE [Concomitant]
  6. XENAZINE [Concomitant]

REACTIONS (3)
  - Aphasia [Unknown]
  - Gait disturbance [Unknown]
  - Dyskinesia [Unknown]
